FAERS Safety Report 13785050 (Version 1)
Quarter: 2017Q3

REPORT INFORMATION
  Report Type: Report from Study
  Country: CL (occurrence: CL)
  Receive Date: 20170725
  Receipt Date: 20170725
  Transmission Date: 20171127
  Serious: Yes (Other)
  Sender: FDA-Public Use
  Company Number: CL-EMD SERONO-E2B_80075805

PATIENT
  Age: 30 Year
  Sex: Female

DRUGS (1)
  1. REBIF [Suspect]
     Active Substance: INTERFERON BETA-1A
     Indication: MULTIPLE SCLEROSIS
     Route: 058
     Dates: start: 20161012, end: 201705

REACTIONS (6)
  - Aggression [Unknown]
  - Abortion spontaneous [Recovered/Resolved]
  - Pruritus generalised [Unknown]
  - Insomnia [Unknown]
  - Anxiety [Unknown]
  - Maternal exposure during pregnancy [Recovered/Resolved]

NARRATIVE: CASE EVENT DATE: 2017
